FAERS Safety Report 7601446 (Version 5)
Quarter: 2015Q3

REPORT INFORMATION
  Report Type: Spontaneous
  Country: JP (occurrence: None)
  Receive Date: 20100909
  Receipt Date: 20150715
  Transmission Date: 20151125
  Serious: Yes (Other)
  Sender: FDA-Public Use
  Company Number: 2010JP005142

PATIENT
  Age: 71 Year
  Sex: Male
  Weight: 63 kg

DRUGS (6)
  1. PREDNISOLONE. [Concomitant]
     Active Substance: PREDNISOLONE
  2. ADALAT-CR (NIFEDIPINE) [Concomitant]
  3. PROGRAF [Suspect]
     Active Substance: TACROLIMUS\TACROLIMUS ANHYDROUS
     Indication: LUPUS NEPHRITIS
     Route: 048
     Dates: start: 20090530, end: 20100507
  4. BENET (SODIUM RISEDRONATE HYDRATE) [Concomitant]
  5. PERSANTINE [Concomitant]
     Active Substance: DIPYRIDAMOLE
  6. PREMINENT (LOSARTAN POTASSIUM_HYDROCHLOROTHIAZIDE) [Concomitant]

REACTIONS (2)
  - Sjogren^s syndrome [None]
  - Drug ineffective [None]

NARRATIVE: CASE EVENT DATE: 20100508
